FAERS Safety Report 5256463-5 (Version None)
Quarter: 2007Q1

REPORT INFORMATION
  Report Type: 
  Country: None (occurrence: None)
  Receive Date: 20070306
  Receipt Date: 20070228
  Transmission Date: 20070707
  Serious: Yes (Other)
  Sender: FDA-Public Use
  Company Number: US-GLAXOSMITHKLINE-A0637243A

PATIENT
  Sex: Female

DRUGS (1)
  1. LAMICTAL [Suspect]
     Indication: BIPOLAR DISORDER

REACTIONS (6)
  - ANAEMIA [None]
  - GINGIVAL DISCOLOURATION [None]
  - INCREASED TENDENCY TO BRUISE [None]
  - LABORATORY TEST ABNORMAL [None]
  - MOUTH PLAQUE [None]
  - STEVENS-JOHNSON SYNDROME [None]
